FAERS Safety Report 16749633 (Version 1)
Quarter: 2020Q3

REPORT INFORMATION
  Report Type: Spontaneous
  Country: CN (occurrence: CN)
  Receive Date: 20190828
  Receipt Date: 20190828
  Transmission Date: 20201105
  Serious: Yes (Hospitalization)
  Sender: FDA-Public Use
  Company Number: CN-PFIZER INC-2019365901

PATIENT
  Age: 49 Year
  Sex: Male
  Weight: 60 kg

DRUGS (3)
  1. HENG YANG [Suspect]
     Active Substance: IMRECOXIB
     Indication: INTERVERTEBRAL DISC PROTRUSION
     Dosage: 0.2 G, 2X/DAY
     Route: 048
     Dates: start: 20190505, end: 20190517
  2. CELECOXIB. [Suspect]
     Active Substance: CELECOXIB
     Indication: INTERVERTEBRAL DISC PROTRUSION
     Dosage: 0.2 G, 2X/DAY
     Route: 048
     Dates: start: 20190517, end: 20190518
  3. METHYLCOBALAMIN. [Suspect]
     Active Substance: METHYLCOBALAMIN
     Indication: INTERVERTEBRAL DISC PROTRUSION
     Dosage: 0.5 MG, 3X/DAY
     Route: 048
     Dates: start: 20190515, end: 20190518

REACTIONS (2)
  - Skin infection [Recovering/Resolving]
  - Dermatitis allergic [Recovering/Resolving]

NARRATIVE: CASE EVENT DATE: 20190518
